FAERS Safety Report 11219886 (Version 1)
Quarter: 2015Q2

REPORT INFORMATION
  Report Type: Spontaneous
  Country: US (occurrence: US)
  Receive Date: 20150625
  Receipt Date: 20150625
  Transmission Date: 20150821
  Serious: Yes (Other)
  Sender: FDA-Public Use
  Company Number: US-GLAXOSMITHKLINE INC.-US2015GSK088831

PATIENT
  Sex: Male

DRUGS (1)
  1. LAMICTAL [Suspect]
     Active Substance: LAMOTRIGINE
     Indication: PRODUCT USED FOR UNKNOWN INDICATION
     Dosage: 200 MG, U

REACTIONS (7)
  - Epilepsy [Unknown]
  - Amygdalohippocampectomy [Unknown]
  - Generalised tonic-clonic seizure [Unknown]
  - Brain operation [Unknown]
  - Craniotomy [Unknown]
  - Seizure [Not Recovered/Not Resolved]
  - Brain lobectomy [Unknown]

NARRATIVE: CASE EVENT DATE: 2002
